FAERS Safety Report 9969829 (Version 1)
Quarter: 2014Q1

REPORT INFORMATION
  Report Type: Spontaneous
  Country: AU (occurrence: None)
  Receive Date: 20140304
  Receipt Date: 20140304
  Transmission Date: 20141002
  Serious: Yes (Other)
  Sender: FDA-Public Use
  Company Number: FK201400626

PATIENT
  Age: 46 Year
  Sex: Female

DRUGS (2)
  1. LEVETIRACETAM (MANUFACTURER UNKNOWN) (LEVETIRACETAM) (LEVETIRACETAM) [Suspect]
     Indication: EPILEPSY
     Dates: start: 2001
  2. LAMOTRIGINE (LAMOTRIGINE) [Suspect]
     Indication: EPILEPSY
     Dosage: 200 MG, ^1 MANE AND 11NOCTE^, UNKNOWN
     Dates: start: 2006

REACTIONS (2)
  - Obsessive-compulsive disorder [None]
  - Gambling [None]
